FAERS Safety Report 6088478-1 (Version None)
Quarter: 2009Q1

REPORT INFORMATION
  Report Type: 
  Country: None (occurrence: None)
  Receive Date: 20090219
  Receipt Date: 20090209
  Transmission Date: 20090719
  Serious: Yes (Life-Threatening)
  Sender: FDA-Public Use
  Company Number: 2009AL000803

PATIENT

DRUGS (1)
  1. NIFEDIPINE [Suspect]
     Dosage: 1 MG UNK IV
     Route: 042
     Dates: start: 20060922

REACTIONS (1)
  - BLOOD PRESSURE DECREASED [None]
